FAERS Safety Report 9074327 (Version 1)
Quarter: 2013Q1

REPORT INFORMATION
  Report Type: Report from Study
  Country: US (occurrence: US)
  Receive Date: 20130129
  Receipt Date: 20130129
  Transmission Date: 20140127
  Serious: No
  Sender: FDA-Public Use
  Company Number: US-ABBOTT-12P-163-0931940-00

PATIENT
  Age: 23 Year
  Sex: Male

DRUGS (6)
  1. HUMIRA 40 MG/0.8 ML PEN [Suspect]
     Indication: ANKYLOSING SPONDYLITIS
  2. ISONIAZID [Concomitant]
     Indication: LATENT TUBERCULOSIS
     Dosage: 300MG DAILY
     Route: 048
  3. SINGULAR [Concomitant]
     Indication: HYPERSENSITIVITY
     Dosage: 10MG DAILY
     Route: 048
  4. CLARITAN [Concomitant]
     Indication: HYPERSENSITIVITY
     Dosage: 10MG DAILY
     Route: 048
  5. VITAMIN D [Concomitant]
     Indication: VITAMIN SUPPLEMENTATION
     Dosage: 1000 IU DAILY
     Route: 048
  6. MULTIVITAMIN [Concomitant]
     Indication: PRODUCT USED FOR UNKNOWN INDICATION

REACTIONS (1)
  - Injection site pain [Recovered/Resolved]
